FAERS Safety Report 4292100-4 (Version None)
Quarter: 2004Q1

REPORT INFORMATION
  Report Type: 
  Country: None (occurrence: None)
  Receive Date: 20040211
  Receipt Date: 20031209
  Transmission Date: 20041129
  Serious: No
  Sender: FDA-Public Use
  Company Number: US-GLAXOSMITHKLINE-A0442520A

PATIENT
  Sex: Male

DRUGS (5)
  1. LAMICTAL [Suspect]
     Indication: BIPOLAR DISORDER
     Dosage: 200MG PER DAY
     Route: 048
  2. ZITHROMAX [Concomitant]
  3. UNKNOWN MEDICATION [Concomitant]
  4. TOPAMAX [Concomitant]
  5. SEROQUEL [Concomitant]

REACTIONS (1)
  - FLUSHING [None]
